FAERS Safety Report 14730559 (Version 1)
Quarter: 2018Q2

REPORT INFORMATION
  Report Type: Spontaneous
  Country: US (occurrence: US)
  Receive Date: 20180402
  Receipt Date: 20180402
  Transmission Date: 20180711
  Serious: No
  Sender: FDA-Public Use
  Company Number: None

PATIENT
  Age: 78 Year
  Sex: Female

DRUGS (1)
  1. OPSUMIT [Suspect]
     Active Substance: MACITENTAN
     Indication: COR PULMONALE CHRONIC
     Route: 048
     Dates: start: 20180308

REACTIONS (8)
  - Fatigue [None]
  - Fall [None]
  - Muscular weakness [None]
  - Gait disturbance [None]
  - Oedema peripheral [None]
  - Asthenia [None]
  - Oral candidiasis [None]
  - Joint swelling [None]

NARRATIVE: CASE EVENT DATE: 20180324
